FAERS Safety Report 13514052 (Version 1)
Quarter: 2017Q2

REPORT INFORMATION
  Report Type: Spontaneous
  Country: US (occurrence: US)
  Receive Date: 20170504
  Receipt Date: 20170504
  Transmission Date: 20170830
  Serious: No
  Sender: FDA-Public Use
  Company Number: US-PFIZER INC-2017194527

PATIENT
  Age: 65 Year
  Sex: Female
  Weight: 95.24 kg

DRUGS (2)
  1. GABAPENTIN. [Suspect]
     Active Substance: GABAPENTIN
     Indication: SPINAL CORD INJURY
  2. GABAPENTIN. [Suspect]
     Active Substance: GABAPENTIN
     Indication: NEURALGIA
     Dosage: 1500 MG, DAILY [300 MG, 5 CAPSULES A DAY]

REACTIONS (2)
  - Product use in unapproved indication [Unknown]
  - Clumsiness [Unknown]
